FAERS Safety Report 5920843-2 (Version None)
Quarter: 2008Q4

REPORT INFORMATION
  Report Type: 
  Country: None (occurrence: None)
  Receive Date: 20081016
  Receipt Date: 20081009
  Transmission Date: 20090506
  Serious: Yes (Hospitalization, Other)
  Sender: FDA-Public Use
  Company Number: US-ELI_LILLY_AND_COMPANY-US200810002390

PATIENT
  Sex: Female

DRUGS (20)
  1. HUMULIN N [Suspect]
  2. HUMULIN N [Suspect]
  3. HUMULIN N [Suspect]
  4. HUMULIN N [Suspect]
  5. HUMALOG [Suspect]
  6. HUMALOG [Suspect]
  7. NAMENDA [Concomitant]
  8. ARICEPT [Concomitant]
  9. LOMOTIL [Concomitant]
  10. TRANXENE [Concomitant]
  11. LASIX [Concomitant]
  12. XANAX [Concomitant]
  13. PLETAL [Concomitant]
  14. ZOCOR [Concomitant]
  15. METENIX 5 [Concomitant]
  16. SYNTHROID [Concomitant]
  17. LISINOPRIL [Concomitant]
  18. TYLENOL                                 /SCH/ [Concomitant]
  19. WELLBUTRIN SR [Concomitant]
  20. HYOSCYAMINE [Concomitant]

REACTIONS (9)
  - BLINDNESS TRANSIENT [None]
  - BLOOD GLUCOSE INCREASED [None]
  - CELLULITIS [None]
  - DRUG INEFFECTIVE [None]
  - EXCORIATION [None]
  - FALL [None]
  - KNEE OPERATION [None]
  - VEIN DISORDER [None]
  - VISUAL ACUITY REDUCED [None]
